FAERS Safety Report 23204247 (Version 1)
Quarter: 2023Q4

REPORT INFORMATION
  Report Type: Other
  Country: GB (occurrence: GB)
  Receive Date: 20231120
  Receipt Date: 20231120
  Transmission Date: 20240109
  Serious: Yes (Other)
  Sender: FDA-Public Use
  Company Number: None

PATIENT

DRUGS (2)
  1. ALLOPURINOL [Suspect]
     Active Substance: ALLOPURINOL
     Indication: Blood uric acid
     Dosage: 300 MG ONCE A DAY AT NIGHT
     Route: 065
     Dates: start: 20230925
  2. COLCHICINE [Concomitant]
     Active Substance: COLCHICINE
     Indication: Blood uric acid
     Dosage: UNK
     Route: 065
     Dates: start: 20230901

REACTIONS (1)
  - Fatigue [Not Recovered/Not Resolved]

NARRATIVE: CASE EVENT DATE: 20231007
